FAERS Safety Report 19100333 (Version 1)
Quarter: 2021Q2

REPORT INFORMATION
  Report Type: Spontaneous
  Country: US (occurrence: US)
  Receive Date: 20210407
  Receipt Date: 20210407
  Transmission Date: 20210717
  Serious: No
  Sender: FDA-Public Use
  Company Number: US-JNJFOC-20210356407

PATIENT
  Age: 49 Year
  Sex: Female

DRUGS (1)
  1. WOMENS ROGAINE UNSCENTED [Suspect]
     Active Substance: MINOXIDIL
     Indication: ALOPECIA
     Dosage: PER DIRECTIONS
     Route: 061
     Dates: start: 20201201

REACTIONS (1)
  - Application site exfoliation [Recovering/Resolving]

NARRATIVE: CASE EVENT DATE: 20201221
